FAERS Safety Report 20981145 (Version 11)
Quarter: 2025Q2

REPORT INFORMATION
  Report Type: Spontaneous
  Country: IN (occurrence: IN)
  Receive Date: 20220620
  Receipt Date: 20250429
  Transmission Date: 20250717
  Serious: Yes (Other)
  Sender: PFIZER
  Company Number: IN-PFIZER INC-2021445341

PATIENT
  Age: 78 Year
  Sex: Female

DRUGS (16)
  1. PALBOCICLIB [Suspect]
     Active Substance: PALBOCICLIB
     Indication: Breast cancer metastatic
     Dosage: 125 MG, 1X/DAY
     Route: 048
     Dates: start: 20191116, end: 20210925
  2. PALBOCICLIB [Suspect]
     Active Substance: PALBOCICLIB
     Route: 048
  3. PALBOCICLIB [Suspect]
     Active Substance: PALBOCICLIB
     Route: 048
  4. PALBOCICLIB [Suspect]
     Active Substance: PALBOCICLIB
     Route: 048
  5. PALBOCICLIB [Suspect]
     Active Substance: PALBOCICLIB
     Route: 048
  6. PALBOCICLIB [Suspect]
     Active Substance: PALBOCICLIB
     Dosage: 100 MG, 1X/DAY
  7. PALBOCICLIB [Suspect]
     Active Substance: PALBOCICLIB
  8. MEGASTY [Concomitant]
     Dosage: 160 MG, 1X/DAY
  9. FULVESTRANT [Concomitant]
     Active Substance: FULVESTRANT
     Dosage: 500 MG, MONTHLY (ONCE A MONTH, FOR 3 MONTHS)
     Route: 030
  10. NEUKINE [Concomitant]
     Route: 058
  11. LYCOGEM FORTE [Concomitant]
     Dosage: 1 DAILY FOR 3 MONTHS
  12. FOLVITE [Concomitant]
     Active Substance: FOLIC ACID
     Dates: start: 201912
  13. FOLVITE [Concomitant]
     Active Substance: FOLIC ACID
  14. LETROZOLE [Concomitant]
     Active Substance: LETROZOLE
  15. CALCIUM\CHOLECALCIFEROL [Concomitant]
     Active Substance: CALCIUM\CHOLECALCIFEROL
     Dosage: 1 DF, DAILY
  16. PREDNISONE [Concomitant]
     Active Substance: PREDNISONE
     Dosage: 5 MG 1-0-0 X 3MONTH

REACTIONS (19)
  - Biliary dilatation [Unknown]
  - Bile duct stenosis [Unknown]
  - Chest discomfort [Unknown]
  - White blood cell count decreased [Recovering/Resolving]
  - Stent placement [Unknown]
  - Metastases to lymph nodes [Unknown]
  - Metastases to peripheral vascular system [Unknown]
  - Metastases to skin [Unknown]
  - Phlebolith [Unknown]
  - Exostosis [Unknown]
  - Spinal osteoarthritis [Unknown]
  - Blood creatinine increased [Unknown]
  - Decreased appetite [Unknown]
  - Platelet count decreased [Unknown]
  - Haemoglobin decreased [Unknown]
  - Asthenia [Recovering/Resolving]
  - Mood swings [Recovering/Resolving]
  - Blood creatinine decreased [Unknown]
  - Inappropriate schedule of product administration [Unknown]

NARRATIVE: CASE EVENT DATE: 20210301
